FAERS Safety Report 9116355 (Version 2)
Quarter: 2013Q2

REPORT INFORMATION
  Report Type: Spontaneous
  Country: JP (occurrence: JP)
  Receive Date: 20130225
  Receipt Date: 20130403
  Transmission Date: 20140414
  Serious: Yes (Hospitalization)
  Sender: FDA-Public Use
  Company Number: JP-009507513-1302JPN009190

PATIENT
  Age: 70 Year
  Sex: Female

DRUGS (14)
  1. FOSAPREPITANT DIMEGLUMINE [Suspect]
     Indication: PROPHYLAXIS OF NAUSEA AND VOMITING
     Dosage: 150 MG, DAILY
     Route: 041
     Dates: start: 20121010, end: 20121010
  2. FOSAPREPITANT DIMEGLUMINE [Suspect]
     Dosage: 150 MG, DAILY
     Route: 041
     Dates: start: 2012, end: 2012
  3. FOSAPREPITANT DIMEGLUMINE [Suspect]
     Dosage: 150 MG, DAILY
     Route: 041
     Dates: start: 20121122, end: 20121122
  4. EPIRUBICIN HYDROCHLORIDE [Suspect]
     Indication: BREAST CANCER
     Dosage: UNK
     Route: 041
     Dates: start: 20121010
  5. EPIRUBICIN HYDROCHLORIDE [Suspect]
     Dosage: UNK
     Route: 041
     Dates: start: 2012
  6. EPIRUBICIN HYDROCHLORIDE [Suspect]
     Dosage: UNK
     Route: 041
     Dates: start: 20121122, end: 20121122
  7. FLUOROURACIL [Suspect]
     Indication: BREAST CANCER
     Dosage: UNK
     Route: 041
     Dates: start: 20121010
  8. FLUOROURACIL [Suspect]
     Dosage: UNK
     Route: 041
     Dates: start: 2012
  9. FLUOROURACIL [Suspect]
     Dosage: UNK
     Route: 041
     Dates: start: 20121122, end: 20121122
  10. CYCLOPHOSPHAMIDE [Suspect]
     Indication: BREAST CANCER
     Dosage: UNK
     Route: 041
     Dates: start: 20121122
  11. CYCLOPHOSPHAMIDE [Suspect]
     Dosage: UNK
     Route: 041
     Dates: start: 2012
  12. CYCLOPHOSPHAMIDE [Suspect]
     Dosage: UNK
     Route: 041
     Dates: start: 20121122, end: 20121122
  13. ALOXI [Suspect]
     Indication: PROPHYLAXIS OF NAUSEA AND VOMITING
     Dosage: UNK
     Route: 041
     Dates: start: 20121122, end: 20121122
  14. GRAN [Suspect]
     Route: 041

REACTIONS (4)
  - Injection site vasculitis [Recovering/Resolving]
  - Injection site ulcer [Recovering/Resolving]
  - Injection site cellulitis [Recovering/Resolving]
  - Injection site erythema [Recovering/Resolving]
